FAERS Safety Report 11076454 (Version 1)
Quarter: 2015Q2

REPORT INFORMATION
  Report Type: Report from Study
  Country: CH (occurrence: CH)
  Receive Date: 20150429
  Receipt Date: 20150429
  Transmission Date: 20150821
  Serious: Yes (Death, Hospitalization, Other)
  Sender: FDA-Public Use
  Company Number: CH-GLAXOSMITHKLINE-B0925574A

PATIENT
  Age: 68 Year
  Sex: Female

DRUGS (1)
  1. SUMATRIPTAN SUCCINATE. [Suspect]
     Active Substance: SUMATRIPTAN SUCCINATE
     Indication: MIGRAINE
     Route: 065

REACTIONS (10)
  - Headache [Unknown]
  - Ill-defined disorder [Unknown]
  - Reversible cerebral vasoconstriction syndrome [Unknown]
  - Hemiparesis [Unknown]
  - Loss of consciousness [Unknown]
  - Ischaemic stroke [Fatal]
  - Hypertension [Unknown]
  - Cerebral ischaemia [Unknown]
  - Vasospasm [Unknown]
  - Brain oedema [Fatal]
